FAERS Safety Report 5484310-5 (Version None)
Quarter: 2007Q4

REPORT INFORMATION
  Report Type: 
  Country: None (occurrence: None)
  Receive Date: 20071012
  Receipt Date: 20070928
  Transmission Date: 20080405
  Serious: No
  Sender: FDA-Public Use
  Company Number: US-BOEHRINGER INGELHEIM PHARMACEUTICALS, INC.-2007-BP-21843BP

PATIENT
  Sex: Female

DRUGS (2)
  1. SPIRIVA [Suspect]
     Indication: DYSPNOEA
     Route: 055
     Dates: start: 20060901
  2. ALBUTEROL [Concomitant]
     Indication: DYSPNOEA

REACTIONS (4)
  - CONSTIPATION [None]
  - DIPLOPIA [None]
  - DRY MOUTH [None]
  - HALLUCINATION, VISUAL [None]
